FAERS Safety Report 8381761-6 (Version None)
Quarter: 2012Q2

REPORT INFORMATION
  Report Type: 
  Country: None (occurrence: None)
  Receive Date: 20120524
  Receipt Date: 20120516
  Transmission Date: 20120825
  Serious: No
  Sender: FDA-Public Use
  Company Number: US-BIOGENIDEC-2012BI017374

PATIENT
  Age: 25 Year
  Sex: Female

DRUGS (1)
  1. AVONEX [Suspect]
     Indication: MULTIPLE SCLEROSIS
     Route: 030
     Dates: start: 20051125

REACTIONS (5)
  - BRONCHITIS [None]
  - OPTIC NEURITIS [None]
  - TONSILLITIS [None]
  - PAIN [None]
  - INFLUENZA LIKE ILLNESS [None]
